FAERS Safety Report 7414408-3 (Version None)
Quarter: 2011Q2

REPORT INFORMATION
  Report Type: 
  Country: None (occurrence: None)
  Receive Date: 20110414
  Receipt Date: 20110401
  Transmission Date: 20111010
  Serious: Yes (Hospitalization, Other)
  Sender: FDA-Public Use
  Company Number: US-ELI_LILLY_AND_COMPANY-US201104001028

PATIENT
  Sex: Female

DRUGS (4)
  1. BACLOFEN [Concomitant]
     Dosage: 10 MG, TID
     Route: 065
  2. VITAMIN D [Concomitant]
     Dosage: UNK
     Route: 065
  3. FORTEO [Suspect]
     Indication: OSTEOPOROSIS
     Dosage: 20 UG, QD
     Route: 065
     Dates: start: 20101001
  4. DITROPAN [Concomitant]
     Dosage: 5 MG, UNK
     Route: 065

REACTIONS (2)
  - LOWER LIMB FRACTURE [None]
  - CONDITION AGGRAVATED [None]
